FAERS Safety Report 16598903 (Version 1)
Quarter: 2019Q3

REPORT INFORMATION
  Report Type: Spontaneous
  Country: US (occurrence: US)
  Receive Date: 20190719
  Receipt Date: 20190719
  Transmission Date: 20191004
  Serious: No
  Sender: FDA-Public Use
  Company Number: US-ASTRAZENECA-2018SF46227

PATIENT
  Sex: Male
  Weight: 72.6 kg

DRUGS (17)
  1. TUDORZA PRESSAIR [Suspect]
     Active Substance: ACLIDINIUM BROMIDE
     Indication: BRONCHITIS
     Dosage: 400 MCG, ONE PUFF TWICE A DAY
     Route: 055
  2. PROZAC [Concomitant]
     Active Substance: FLUOXETINE HYDROCHLORIDE
     Indication: ANXIETY
     Route: 048
  3. TAMSULOSIN [Concomitant]
     Active Substance: TAMSULOSIN
     Indication: BLADDER DISORDER
     Route: 048
  4. SINGULAIR [Concomitant]
     Active Substance: MONTELUKAST SODIUM
     Indication: MULTIPLE ALLERGIES
     Dosage: AS REQUIRED
     Route: 048
  5. TRAVATAN [Concomitant]
     Active Substance: TRAVOPROST
     Indication: BORDERLINE GLAUCOMA
     Route: 047
  6. TUDORZA PRESSAIR [Suspect]
     Active Substance: ACLIDINIUM BROMIDE
     Indication: MULTIPLE ALLERGIES
     Dosage: 400 MCG, ONE PUFF TWICE A DAY
     Route: 055
  7. TUDORZA PRESSAIR [Suspect]
     Active Substance: ACLIDINIUM BROMIDE
     Indication: EMPHYSEMA
     Dosage: 400 MCG, ONE PUFF TWICE A DAY
     Route: 055
  8. TUDORZA PRESSAIR [Suspect]
     Active Substance: ACLIDINIUM BROMIDE
     Indication: ASTHMA
     Dosage: 400 MCG, ONE PUFF TWICE A DAY
     Route: 055
  9. GABAPENTIN. [Concomitant]
     Active Substance: GABAPENTIN
     Indication: CIRCULATORY COLLAPSE
     Route: 048
  10. ZYRTEC [Concomitant]
     Active Substance: CETIRIZINE HYDROCHLORIDE
     Indication: MULTIPLE ALLERGIES
     Route: 048
  11. RANITIDINE. [Concomitant]
     Active Substance: RANITIDINE
     Indication: GASTROINTESTINAL DISORDER
     Route: 048
  12. DYMISTA [Concomitant]
     Active Substance: AZELASTINE HYDROCHLORIDE\FLUTICASONE PROPIONATE
     Indication: PARANASAL SINUS DISCOMFORT
     Dosage: AS REQUIRED
  13. ASPIRIN. [Concomitant]
     Active Substance: ASPIRIN
     Route: 048
  14. PROAIR HFA [Concomitant]
     Active Substance: ALBUTEROL SULFATE
     Indication: DRUG THERAPY
     Dosage: AS REQUIRED
     Route: 055
  15. LEVOTHYROXINE. [Concomitant]
     Active Substance: LEVOTHYROXINE
     Indication: THYROID DISORDER
     Route: 048
  16. FLUOXETINE [Concomitant]
     Active Substance: FLUOXETINE HYDROCHLORIDE
     Indication: GASTROINTESTINAL DISORDER
     Route: 048
  17. OMEPRAZOLE. [Suspect]
     Active Substance: OMEPRAZOLE
     Indication: GASTROINTESTINAL DISORDER
     Dosage: UNKNOWN DOSE, DAILY
     Route: 048

REACTIONS (6)
  - Dyspnoea [Unknown]
  - Cough [Unknown]
  - Pulmonary congestion [Unknown]
  - Intentional product misuse [Unknown]
  - Chest discomfort [Unknown]
  - Glucose tolerance impaired [Unknown]
